FAERS Safety Report 14362537 (Version 3)
Quarter: 2018Q1

REPORT INFORMATION
  Report Type: Report from Study
  Country: GB (occurrence: GB)
  Receive Date: 20180108
  Receipt Date: 20180327
  Transmission Date: 20180509
  Serious: Yes (Life-Threatening, Hospitalization, Other)
  Sender: FDA-Public Use
  Company Number: PHHY2018GB001292

PATIENT
  Age: 25 Year
  Sex: Female

DRUGS (1)
  1. COSENTYX [Suspect]
     Active Substance: SECUKINUMAB
     Indication: PSORIASIS
     Dosage: 300 MG, QMO
     Route: 058
     Dates: start: 201608

REACTIONS (7)
  - Pruritus [Unknown]
  - Inappropriate schedule of drug administration [Unknown]
  - Abdominal pain [Unknown]
  - Psoriasis [Unknown]
  - Apparent death [Unknown]
  - Kidney infection [Unknown]
  - Urosepsis [Unknown]

NARRATIVE: CASE EVENT DATE: 20170621
